FAERS Safety Report 7274840-8 (Version None)
Quarter: 2011Q1

REPORT INFORMATION
  Report Type: 
  Country: None (occurrence: None)
  Receive Date: 20110202
  Receipt Date: 20110202
  Transmission Date: 20110831
  Serious: Yes (Hospitalization)
  Sender: FDA-Public Use
  Company Number: None

PATIENT
  Age: 85 Year
  Sex: Female

DRUGS (1)
  1. ZYPREXA ZYDIS [Suspect]
     Indication: SCHIZOAFFECTIVE DISORDER
     Dosage: 5MG DAILY PO
     Route: 048
     Dates: start: 20100601, end: 20110104

REACTIONS (1)
  - DIABETIC HYPEROSMOLAR COMA [None]
